FAERS Safety Report 7455967-4 (Version None)
Quarter: 2011Q2

REPORT INFORMATION
  Report Type: 
  Country: None (occurrence: None)
  Receive Date: 20110426
  Receipt Date: 20110418
  Transmission Date: 20111010
  Serious: Yes (Hospitalization)
  Sender: FDA-Public Use
  Company Number: USA/USA/11/0018037

PATIENT
  Age: 66 Year
  Sex: Female
  Weight: 83.9154 kg

DRUGS (3)
  1. FISH OIL [Concomitant]
  2. OMEPRAZOLE [Suspect]
     Indication: GASTROOESOPHAGEAL REFLUX DISEASE
     Dosage: 20 MG, 2 IN 1 D, ORAL
     Route: 048
     Dates: start: 20110301, end: 20110417
  3. ASCORBIC ACID [Concomitant]

REACTIONS (5)
  - DYSPHEMIA [None]
  - HEADACHE [None]
  - MOVEMENT DISORDER [None]
  - TREMOR [None]
  - HEAD TITUBATION [None]
